FAERS Safety Report 11686151 (Version 7)
Quarter: 2017Q1

REPORT INFORMATION
  Report Type: Spontaneous
  Country: US (occurrence: US)
  Receive Date: 20151030
  Receipt Date: 20170323
  Transmission Date: 20170428
  Serious: Yes (Congenital Anomaly, Other)
  Sender: FDA-Public Use
  Company Number: PHEH2015US021896

PATIENT
  Sex: Male

DRUGS (4)
  1. ONDANSETRON [Suspect]
     Active Substance: ONDANSETRON
     Indication: FOETAL EXPOSURE DURING PREGNANCY
     Dosage: MOTHER^S DOSE: 4 MG/2ML, PRN
     Route: 064
  2. ZOFRAN [Suspect]
     Active Substance: ONDANSETRON HYDROCHLORIDE
     Indication: FOETAL EXPOSURE DURING PREGNANCY
     Dosage: MOTHER^S DOSE: 8 MG, UNK
     Route: 064
  3. ONDANSETRON [Suspect]
     Active Substance: ONDANSETRON
     Indication: FOETAL EXPOSURE DURING PREGNANCY
     Route: 064
  4. ONDANSETRON. [Suspect]
     Active Substance: ONDANSETRON
     Indication: FOETAL EXPOSURE DURING PREGNANCY
     Dosage: MOTHER^S DOSE: 4 MG AT UNKNOWN FREQUENCY
     Route: 064

REACTIONS (33)
  - Hypoplastic left heart syndrome [Unknown]
  - Otitis media [Unknown]
  - Viral infection [Unknown]
  - Multiple congenital abnormalities [Unknown]
  - Congenital cardiovascular anomaly [Unknown]
  - Neonatal respiratory failure [Unknown]
  - Pleural effusion [Unknown]
  - Hypoxia [Unknown]
  - Anhedonia [Unknown]
  - Gastrooesophageal reflux disease [Unknown]
  - Anxiety [Unknown]
  - Congenital anomaly [Unknown]
  - Atrial septal defect [Unknown]
  - Deafness [Unknown]
  - Jaundice neonatal [Unknown]
  - Cardiomegaly [Unknown]
  - Upper respiratory tract infection [Unknown]
  - Foetal exposure during pregnancy [Unknown]
  - Developmental delay [Unknown]
  - Injury [Unknown]
  - Congenital aortic stenosis [Unknown]
  - Patent ductus arteriosus [Unknown]
  - Neonatal respiratory distress syndrome [Unknown]
  - Pain [Unknown]
  - Oedema neonatal [Unknown]
  - Neonatal tachypnoea [Unknown]
  - Emotional distress [Unknown]
  - Selective eating disorder [Unknown]
  - Heart disease congenital [Unknown]
  - Congenital mitral valve stenosis [Unknown]
  - Tricuspid valve incompetence [Unknown]
  - Infantile apnoea [Unknown]
  - Sepsis neonatal [Unknown]
